FAERS Safety Report 21837442 (Version 14)
Quarter: 2025Q1

REPORT INFORMATION
  Report Type: Report from Study
  Country: CA (occurrence: CA)
  Receive Date: 20230109
  Receipt Date: 20250228
  Transmission Date: 20250409
  Serious: Yes (Hospitalization, Other)
  Sender: TAKEDA
  Company Number: CA-TAKEDA-2022TUS002422

PATIENT
  Age: 24 Year
  Sex: Female

DRUGS (9)
  1. VEDOLIZUMAB [Suspect]
     Active Substance: VEDOLIZUMAB
     Indication: Crohn^s disease
  2. VEDOLIZUMAB [Suspect]
     Active Substance: VEDOLIZUMAB
  3. VEDOLIZUMAB [Suspect]
     Active Substance: VEDOLIZUMAB
  4. VEDOLIZUMAB [Suspect]
     Active Substance: VEDOLIZUMAB
     Dosage: 300 MILLIGRAM, Q4WEEKS
     Dates: start: 20230210
  5. VEDOLIZUMAB [Suspect]
     Active Substance: VEDOLIZUMAB
     Dosage: 300 MILLIGRAM, Q4WEEKS
  6. VEDOLIZUMAB [Suspect]
     Active Substance: VEDOLIZUMAB
     Dosage: 300 MILLIGRAM, Q4WEEKS
  7. VEDOLIZUMAB [Suspect]
     Active Substance: VEDOLIZUMAB
     Dosage: 300 MILLIGRAM, Q4WEEKS
  8. VEDOLIZUMAB [Suspect]
     Active Substance: VEDOLIZUMAB
     Dosage: 300 MILLIGRAM, Q4WEEKS
  9. VEDOLIZUMAB [Suspect]
     Active Substance: VEDOLIZUMAB
     Dosage: 300 MILLIGRAM, Q4WEEKS

REACTIONS (17)
  - Crohn^s disease [Unknown]
  - Anastomotic leak [Unknown]
  - Intestinal fistula [Unknown]
  - Abscess intestinal [Unknown]
  - Post procedural infection [Unknown]
  - Abdominal pain [Unknown]
  - Vomiting [Unknown]
  - Dysgeusia [Unknown]
  - Off label use [Unknown]
  - Infrequent bowel movements [Unknown]
  - Therapy non-responder [Not Recovered/Not Resolved]
  - Flatulence [Unknown]
  - Pain [Unknown]
  - Intestinal transit time increased [Unknown]
  - Procedural pain [Unknown]
  - Product dose omission issue [Unknown]
  - Night sweats [Unknown]

NARRATIVE: CASE EVENT DATE: 20230210
